FAERS Safety Report 5951054-2 (Version None)
Quarter: 2008Q4

REPORT INFORMATION
  Report Type: 
  Country: None (occurrence: None)
  Receive Date: 20081110
  Receipt Date: 20080819
  Transmission Date: 20090506
  Serious: Yes (Other)
  Sender: FDA-Public Use
  Company Number: TPH-00115

PATIENT
  Age: 19 Year
  Sex: Female

DRUGS (2)
  1. TRIQUILAR LOT NUMBER: 1607B [Suspect]
     Indication: CONTRACEPTION
     Dosage: ORAL
     Route: 048
     Dates: start: 20080809
  2. TRIQUILAR LOT NUMBER: 1607B [Suspect]
     Indication: MENSTRUATION IRREGULAR
     Dosage: ORAL
     Route: 048
     Dates: start: 20080809

REACTIONS (4)
  - ABDOMINAL DISCOMFORT [None]
  - DRY MOUTH [None]
  - NAUSEA [None]
  - SOMNOLENCE [None]
